FAERS Safety Report 5217949-2 (Version None)
Quarter: 2007Q1

REPORT INFORMATION
  Report Type: 
  Country: None (occurrence: None)
  Receive Date: 20061130
  Receipt Date: 20060918
  Transmission Date: 20070707
  Serious: Yes (Other)
  Sender: FDA-Public Use
  Company Number: US200609004435

PATIENT
  Age: 55 Year
  Sex: Female

DRUGS (1)
  1. ZYPREXA [Suspect]
     Indication: BIPOLAR DISORDER
     Dosage: 5 MG
     Dates: start: 20031001, end: 20060601

REACTIONS (3)
  - ACTIVITIES OF DAILY LIVING IMPAIRED [None]
  - TREMOR [None]
  - WEIGHT INCREASED [None]
